FAERS Safety Report 6906090-6 (Version None)
Quarter: 2010Q3

REPORT INFORMATION
  Report Type: 
  Country: None (occurrence: None)
  Receive Date: 20100802
  Receipt Date: 20100723
  Transmission Date: 20110219
  Serious: Yes (Death, Hospitalization)
  Sender: FDA-Public Use
  Company Number: 2010MA001235

PATIENT
  Age: 65 Year
  Sex: Female

DRUGS (13)
  1. METFORMIN HYDROCHLORIDE [Suspect]
     Indication: DIABETES MELLITUS
     Dosage: 2.6 MG;QD;PO
     Route: 048
  2. COZAAR [Concomitant]
  3. LEVOTHYROXINE SODIUM [Concomitant]
  4. METOPROLOL [Concomitant]
  5. FURADANTIN [Concomitant]
  6. ACETAMINOPHEN [Concomitant]
  7. BEHEPAN [Concomitant]
  8. DIGOXIN [Concomitant]
  9. FURIX [Concomitant]
  10. ASPIRIN [Concomitant]
  11. ALLOPURINOL [Concomitant]
  12. ZON [Concomitant]
  13. PREV MEDS = UNKNOWN [Concomitant]

REACTIONS (11)
  - ABDOMINAL PAIN [None]
  - BLOOD PRESSURE DECREASED [None]
  - BRADYCARDIA [None]
  - CARDIAC ARREST [None]
  - CHEST PAIN [None]
  - DYSPNOEA [None]
  - DYSURIA [None]
  - LACTIC ACIDOSIS [None]
  - NASOPHARYNGITIS [None]
  - SOMNOLENCE [None]
  - TACHYCARDIA [None]
